FAERS Safety Report 6335331-1 (Version None)
Quarter: 2009Q3

REPORT INFORMATION
  Report Type: 
  Country: None (occurrence: None)
  Receive Date: 20090827
  Receipt Date: 20090819
  Transmission Date: 20100115
  Serious: Yes (Hospitalization)
  Sender: FDA-Public Use
  Company Number: GXKR2009FI08709

PATIENT
  Age: 76 Year
  Sex: Male

DRUGS (3)
  1. SIMVASTATIN [Suspect]
     Dosage: 20 MG, QD ; 40 MG
  2. REUMACON (DEMETHYL PODOPHYLLOTOXIN BENZYLIDENE GLUCOSID, PODOPHYLLOTOX [Suspect]
     Indication: RHEUMATOID ARTHRITIS
     Dosage: 100 MG, BID ; 100 MG, QD ; 200 MG, QD
  3. PREDNISOLONE [Concomitant]

REACTIONS (9)
  - DRUG INTERACTION [None]
  - FALL [None]
  - FRACTURE [None]
  - HYPOALBUMINAEMIA [None]
  - LUMBAR VERTEBRAL FRACTURE [None]
  - MUSCLE CONTRACTIONS INVOLUNTARY [None]
  - MYOPATHY [None]
  - POLYNEUROPATHY [None]
  - WEIGHT BEARING DIFFICULTY [None]
